FAERS Safety Report 14067662 (Version 1)
Quarter: 2017Q4

REPORT INFORMATION
  Report Type: Spontaneous
  Country: GB (occurrence: GB)
  Receive Date: 20171010
  Receipt Date: 20171010
  Transmission Date: 20180321
  Serious: Yes (Hospitalization, Other)
  Sender: FDA-Public Use
  Company Number: GB-ACCORD-059669

PATIENT
  Age: 53 Year
  Sex: Male
  Weight: 99 kg

DRUGS (20)
  1. HUMULIN M3 [Concomitant]
     Active Substance: INSULIN HUMAN
  2. SODIUM BICARBONATE. [Concomitant]
     Active Substance: SODIUM BICARBONATE
  3. ALFACALCIDOL [Concomitant]
     Active Substance: ALFACALCIDOL
  4. MYCOPHENOLIC ACID. [Concomitant]
     Active Substance: MYCOPHENOLIC ACID
  5. CITALOPRAM [Suspect]
     Active Substance: CITALOPRAM HYDROBROMIDE
     Indication: DEPRESSION
     Route: 048
  6. VALGANCICLOVIR/VALGANCICLOVIR HYDROCHLORIDE [Concomitant]
  7. DARBEPOETIN ALFA [Concomitant]
     Active Substance: DARBEPOETIN ALFA
  8. ACETYLSALICYLIC ACID [Concomitant]
     Active Substance: ASPIRIN
  9. NYSTATIN/NYSTATIN/LIPOSOME [Concomitant]
  10. TRAMADOL/TRAMADOL HYDROCHLORIDE [Suspect]
     Active Substance: TRAMADOL HYDROCHLORIDE
     Indication: PAIN
     Route: 048
     Dates: start: 20170425, end: 20170612
  11. ONDANSETRON [Suspect]
     Active Substance: ONDANSETRON
     Indication: NAUSEA
     Route: 048
     Dates: start: 20170425, end: 20170612
  12. OMEPRAZOLE. [Concomitant]
     Active Substance: OMEPRAZOLE
  13. LEVOTHYROXINE. [Concomitant]
     Active Substance: LEVOTHYROXINE
  14. LORAZEPAM. [Concomitant]
     Active Substance: LORAZEPAM
  15. ADOPORT [Concomitant]
     Active Substance: TACROLIMUS
  16. PARACETAMOL [Concomitant]
     Active Substance: ACETAMINOPHEN
  17. CALCICHEW [Concomitant]
     Active Substance: CALCIUM CARBONATE
  18. SULFAMETHOXAZOLE/TRIMETHOPRIM [Concomitant]
  19. HEPARIN [Concomitant]
     Active Substance: HEPARIN SODIUM
  20. PREDNISOLONE. [Concomitant]
     Active Substance: PREDNISOLONE

REACTIONS (5)
  - Disorientation [Recovering/Resolving]
  - Tremor [Recovering/Resolving]
  - Confusional state [Recovering/Resolving]
  - Serotonin syndrome [Unknown]
  - Mydriasis [Recovering/Resolving]

NARRATIVE: CASE EVENT DATE: 20170612
